FAERS Safety Report 4866453-X (Version None)
Quarter: 2005Q4

REPORT INFORMATION
  Report Type: 
  Country: None (occurrence: None)
  Receive Date: 20051227
  Receipt Date: 20051212
  Transmission Date: 20060501
  Serious: Yes (Hospitalization, Other)
  Sender: FDA-Public Use
  Company Number: 2005AC01958

PATIENT
  Age: 75 Year
  Sex: Female

DRUGS (6)
  1. GEFTINIB [Suspect]
     Indication: LUNG CARCINOMA CELL TYPE UNSPECIFIED RECURRENT
  2. GEFTINIB [Suspect]
     Indication: LUNG ADENOCARCINOMA
  3. GEFTINIB [Suspect]
     Indication: NON-SMALL CELL LUNG CANCER
  4. GEFTINIB [Suspect]
  5. GEFTINIB [Suspect]
  6. GEFTINIB [Suspect]

REACTIONS (4)
  - ACUTE MYOCARDIAL INFARCTION [None]
  - FATIGUE [None]
  - PLATELET AGGREGATION INCREASED [None]
  - SKIN TOXICITY [None]
